FAERS Safety Report 24027550 (Version 1)
Quarter: 2024Q2

REPORT INFORMATION
  Report Type: Spontaneous
  Country: ZA (occurrence: None)
  Receive Date: 20240628
  Receipt Date: 20240628
  Transmission Date: 20240716
  Serious: Yes (Hospitalization)
  Sender: FDA-Public Use
  Company Number: 2024A145709

PATIENT
  Age: 49 Year
  Sex: Female

DRUGS (5)
  1. BUDESONIDE\FORMOTEROL [Suspect]
     Active Substance: BUDESONIDE\FORMOTEROL
     Dosage: 60 DOSE UNKNOWN
     Route: 055
  2. DESLORATADINE [Concomitant]
     Active Substance: DESLORATADINE
  3. HYDROCHLOROTHIAZIDE\VALSARTAN [Concomitant]
     Active Substance: HYDROCHLOROTHIAZIDE\VALSARTAN
  4. CARVEDILOL [Concomitant]
     Active Substance: CARVEDILOL
  5. DIOVAN [Concomitant]
     Active Substance: VALSARTAN

REACTIONS (2)
  - Nasal disorder [Unknown]
  - Chest discomfort [Unknown]
